FAERS Safety Report 25326293 (Version 1)
Quarter: 2025Q2

REPORT INFORMATION
  Report Type: Spontaneous
  Country: US (occurrence: US)
  Receive Date: 20250516
  Receipt Date: 20250516
  Transmission Date: 20250717
  Serious: No
  Sender: GALDERMA
  Company Number: US-GALDERMA-US2025006449

PATIENT

DRUGS (2)
  1. NEMLUVIO [Suspect]
     Active Substance: NEMOLIZUMAB-ILTO
     Indication: Neurodermatitis
     Route: 058
     Dates: start: 2025, end: 2025
  2. Viczen [Concomitant]
     Indication: Product used for unknown indication

REACTIONS (3)
  - Fall [Unknown]
  - Head injury [Unknown]
  - Contusion [Unknown]

NARRATIVE: CASE EVENT DATE: 20250101
